FAERS Safety Report 4896019-7 (Version None)
Quarter: 2005Q4

REPORT INFORMATION
  Report Type: 
  Country: None (occurrence: None)
  Receive Date: 20051220
  Receipt Date: 20050317
  Transmission Date: 20060501
  Serious: Yes (Other)
  Sender: FDA-Public Use
  Company Number: 399245

PATIENT
  Age: 54 Year
  Sex: Male
  Weight: 85.3 kg

DRUGS (3)
  1. TAMIFLU [Suspect]
     Indication: INFLUENZA IMMUNISATION
     Dosage: ORAL
     Route: 048
     Dates: start: 20050314, end: 20050317
  2. RISPERDAL [Suspect]
     Indication: PSYCHOTIC DISORDER
     Dosage: ORAL
     Route: 048
  3. 1 CONCOMITANT DRUG (GENERIC UNKNOWN) [Concomitant]

REACTIONS (2)
  - ELECTROCARDIOGRAM QT CORRECTED INTERVAL PROLONGED [None]
  - ELECTROCARDIOGRAM QT PROLONGED [None]
